FAERS Safety Report 7602103-7 (Version None)
Quarter: 2011Q3

REPORT INFORMATION
  Report Type: 
  Country: None (occurrence: None)
  Receive Date: 20110711
  Receipt Date: 20110711
  Transmission Date: 20111222
  Serious: Yes (Death)
  Sender: FDA-Public Use
  Company Number: None

PATIENT
  Age: 50 Year
  Sex: Female
  Weight: 88.45 kg

DRUGS (1)
  1. YASMIN [Suspect]
     Indication: MENORRHAGIA
     Dosage: DOUBLE DOSE FIRST 5 DAYS
     Route: 048
     Dates: start: 20070326, end: 20070605

REACTIONS (3)
  - THROMBOSIS [None]
  - CIRCULATORY COLLAPSE [None]
  - PAIN IN EXTREMITY [None]
